FAERS Safety Report 10448733 (Version 4)
Quarter: 2014Q3

REPORT INFORMATION
  Report Type: Spontaneous
  Country: US (occurrence: US)
  Receive Date: 20140912
  Receipt Date: 20140924
  Transmission Date: 20150326
  Serious: Yes (Hospitalization, Disabling)
  Sender: FDA-Public Use
  Company Number: US-UNITED THERAPEUTICS-UNT-2014-006831

PATIENT
  Age: 58 Year
  Sex: Female
  Weight: 42.81 kg

DRUGS (2)
  1. REMODULIN [Suspect]
     Active Substance: TREPROSTINIL
     Indication: COR PULMONALE CHRONIC
     Dosage: 0.006 ?G/KG/MIN, CONTINUING
     Route: 058
     Dates: start: 20140821
  2. REVATIO [Concomitant]
     Active Substance: SILDENAFIL CITRATE
     Indication: PRODUCT USED FOR UNKNOWN INDICATION

REACTIONS (14)
  - Nausea [Unknown]
  - Pain in extremity [Unknown]
  - Weight decreased [Unknown]
  - Back pain [Unknown]
  - Drug dose omission [Unknown]
  - Pain [Unknown]
  - Pain in jaw [Unknown]
  - Vomiting [Unknown]
  - Headache [Unknown]
  - Decreased appetite [Unknown]
  - Malaise [Unknown]
  - Device issue [Unknown]
  - Activities of daily living impaired [Unknown]
  - Hypotension [Unknown]

NARRATIVE: CASE EVENT DATE: 2014
